FAERS Safety Report 11629211 (Version 1)
Quarter: 2015Q4

REPORT INFORMATION
  Report Type: Spontaneous
  Country: US (occurrence: None)
  Receive Date: 20151013
  Receipt Date: 20151013
  Transmission Date: 20160304
  Serious: Yes (Disabling)
  Sender: FDA-Public Use
  Company Number: None

PATIENT
  Age: 57 Year
  Sex: Female
  Weight: 77.11 kg

DRUGS (8)
  1. LEVOTHYROXINE. [Concomitant]
     Active Substance: LEVOTHYROXINE
  2. MAGNESIUM [Concomitant]
     Active Substance: MAGNESIUM
  3. D [Concomitant]
  4. C [Concomitant]
  5. CALCIUM [Concomitant]
     Active Substance: CALCIUM
  6. CIPROFLOXACIN 500 [Suspect]
     Active Substance: CIPROFLOXACIN
     Indication: KIDNEY INFECTION
     Dosage: 1 PILL
     Route: 048
     Dates: start: 20150928, end: 20151003
  7. VIT B [Concomitant]
     Active Substance: VITAMINS
  8. E [Concomitant]

REACTIONS (11)
  - Fatigue [None]
  - Hypoaesthesia [None]
  - Hyperhidrosis [None]
  - Asthenia [None]
  - Gait disturbance [None]
  - Back pain [None]
  - Chills [None]
  - Decreased appetite [None]
  - Abnormal dreams [None]
  - Pyrexia [None]
  - Tinnitus [None]

NARRATIVE: CASE EVENT DATE: 20150928
